FAERS Safety Report 4887490-5 (Version None)
Quarter: 2006Q1

REPORT INFORMATION
  Report Type: 
  Country: None (occurrence: None)
  Receive Date: 20060123
  Receipt Date: 20060111
  Transmission Date: 20060701
  Serious: Yes (Hospitalization, Other)
  Sender: FDA-Public Use
  Company Number: 2006PK00161

PATIENT
  Age: 14273 Day
  Sex: Male
  Weight: 83 kg

DRUGS (5)
  1. SEROQUEL [Suspect]
     Indication: RESTLESSNESS
     Route: 048
     Dates: start: 20051108
  2. SEROQUEL [Suspect]
     Indication: TENSION
     Route: 048
     Dates: start: 20051108
  3. SEROQUEL [Suspect]
     Indication: AGGRESSION
     Route: 048
     Dates: start: 20051108
  4. BELOC ZOK MITE [Concomitant]
     Indication: TACHYCARDIA
     Dosage: FOR MONTHS
     Route: 048
  5. THEOPHYLLINE [Concomitant]
     Indication: ASTHMA
     Dosage: FOR MONTHS
     Route: 048

REACTIONS (1)
  - THROMBOCYTOPENIA [None]
